FAERS Safety Report 20492979 (Version 1)
Quarter: 2022Q1

REPORT INFORMATION
  Report Type: Spontaneous
  Country: FR (occurrence: FR)
  Receive Date: 20220219
  Receipt Date: 20220219
  Transmission Date: 20220423
  Serious: Yes (Other)
  Sender: FDA-Public Use
  Company Number: None

PATIENT
  Age: 45 Year
  Sex: Male

DRUGS (3)
  1. KETOPROFEN [Suspect]
     Active Substance: KETOPROFEN
     Indication: Toxicity to various agents
     Dosage: 4000MG
     Route: 048
     Dates: start: 20211113, end: 20211114
  2. ACETAMINOPHEN\BELLADONNA LEAF\CAFFEINE\OPIUM [Suspect]
     Active Substance: ACETAMINOPHEN\BELLADONNA LEAF\CAFFEINE\OPIUM
     Indication: Toxicity to various agents
     Dosage: LAMALINE, CAPSULE,UNIT DOSE:16DF
     Route: 048
     Dates: start: 20211114, end: 20211114
  3. BROMAZEPAM [Suspect]
     Active Substance: BROMAZEPAM
     Indication: Toxicity to various agents
     Dosage: LEXOMIL 6 MG, FOUR-SCORED TABLET,UNIT DOSE :180MG
     Route: 048
     Dates: start: 20211113, end: 20211113

REACTIONS (1)
  - Altered state of consciousness [Recovered/Resolved]

NARRATIVE: CASE EVENT DATE: 20211115
